FAERS Safety Report 8886034 (Version 2)
Quarter: 2012Q4

REPORT INFORMATION
  Report Type: Report from Study
  Country: US (occurrence: US)
  Receive Date: 20121105
  Receipt Date: 20121119
  Transmission Date: 20130627
  Serious: Yes (Hospitalization)
  Sender: FDA-Public Use
  Company Number: US-CELGENEUS-163-21660-12103445

PATIENT
  Age: 66 Year
  Sex: Male
  Weight: 88.4 kg

DRUGS (47)
  1. ABRAXANE [Suspect]
     Indication: PANCREATIC CANCER
     Route: 065
     Dates: start: 20120817
  2. ABRAXANE [Suspect]
     Route: 065
     Dates: start: 20121012, end: 20121019
  3. GEMCITABINE [Suspect]
     Indication: PANCREATIC CANCER
     Route: 065
  4. ATENOLOL [Concomitant]
     Indication: ARRHYTHMIA
     Dosage: 100 Milligram
     Route: 048
  5. ASA [Concomitant]
     Indication: PROPHYLAXIS
     Dosage: 325 Milligram
     Route: 048
     Dates: start: 20121024, end: 20121025
  6. GEMFIBROZIL [Concomitant]
     Indication: DRUG USE FOR UNKNOWN INDICATION
     Dosage: 1200 Milligram
     Route: 048
  7. OMEGA 3 FATTY ACIDS-VITAMIN E [Concomitant]
     Indication: DRUG USE FOR UNKNOWN INDICATION
     Dosage: 2000 Milligram
     Route: 048
  8. ZOFRAN [Concomitant]
     Indication: NAUSEA
     Dosage: 8 Milligram
     Route: 048
     Dates: start: 20121022, end: 20121023
  9. ZOFRAN [Concomitant]
     Indication: VOMITING
  10. CALCIUM [Concomitant]
     Indication: DRUG USE FOR UNKNOWN INDICATION
     Dosage: 1000 Milligram
     Route: 048
  11. VITAMIN D [Concomitant]
     Indication: DRUG USE FOR UNKNOWN INDICATION
     Dosage: 2000 IU (International Unit)
     Route: 048
  12. GLUCOSAMINE-CHONDROITIN-VITAMIN C-MN [Concomitant]
     Indication: DRUG USE FOR UNKNOWN INDICATION
     Dosage: 750-600-55-5mg
     Route: 048
  13. OMEPRAZOLE [Concomitant]
     Indication: DRUG USE FOR UNKNOWN INDICATION
     Dosage: 20 Milligram
     Route: 048
  14. SAW PALMETTO [Concomitant]
     Indication: DRUG USE FOR UNKNOWN INDICATION
     Dosage: 1280 Milligram
     Route: 048
  15. TYLENOL [Concomitant]
     Indication: PAIN
     Dosage: 650 Milligram
     Route: 048
     Dates: start: 20121024, end: 20121031
  16. MAALOX PLUS [Concomitant]
     Indication: GI UPSET
     Dosage: 30 milliliter
     Route: 048
     Dates: start: 20121022, end: 20121023
  17. LORAZEPAM [Concomitant]
     Indication: ANXIETY
     Dosage: .5 Milligram
     Route: 048
     Dates: start: 20121022, end: 20121023
  18. LORAZEPAM [Concomitant]
     Indication: SLEEP DISORDER
     Dosage: 0.5-1 mg
     Route: 041
     Dates: start: 20121025, end: 20121031
  19. LORAZEPAM [Concomitant]
     Indication: NAUSEA
  20. LORAZEPAM [Concomitant]
     Indication: VOMITING
  21. MAGNESIUM [Concomitant]
     Indication: DRUG USE FOR UNKNOWN INDICATION
     Route: 065
     Dates: start: 20121022, end: 20121023
  22. PANTOPRAZOLE [Concomitant]
     Indication: DRUG USE FOR UNKNOWN INDICATION
     Dosage: 20 Milligram
     Route: 048
     Dates: start: 20121022, end: 20121023
  23. POTASSIUM [Concomitant]
     Indication: DRUG USE FOR UNKNOWN INDICATION
     Route: 065
     Dates: start: 20121022, end: 20121023
  24. COMPAZINE [Concomitant]
     Indication: NAUSEA
     Dosage: 40 Milligram
     Route: 048
     Dates: start: 20121022, end: 20121023
  25. COMPAZINE [Concomitant]
     Indication: VOMITING
  26. ESMOLOL [Concomitant]
     Indication: DRUG USE FOR UNKNOWN INDICATION
     Dosage: 500mcg/kg
     Route: 041
     Dates: start: 20121022, end: 20121022
  27. ESMOLOL [Concomitant]
     Dosage: 26.6ml/hr
     Route: 041
     Dates: start: 20121022, end: 20121022
  28. LIDOCAINE [Concomitant]
     Indication: DRUG USE FOR UNKNOWN INDICATION
     Route: 061
     Dates: start: 20121023, end: 20121023
  29. LIDOCAINE [Concomitant]
     Dosage: 50 milliliter
     Route: 065
     Dates: start: 20121023, end: 20121023
  30. SILVER NITRATE [Concomitant]
     Indication: DRUG USE FOR UNKNOWN INDICATION
     Route: 061
     Dates: start: 20121023, end: 20121023
  31. NORMAL SALINE [Concomitant]
     Indication: DRUG USE FOR UNKNOWN INDICATION
     Route: 065
  32. FLUCONAZOLE [Concomitant]
     Indication: DRUG USE FOR UNKNOWN INDICATION
     Dosage: 200 Milligram
     Route: 048
     Dates: start: 20121025, end: 20121031
  33. ENOXAPARIN [Concomitant]
     Indication: DRUG USE FOR UNKNOWN INDICATION
     Dosage: 40 Milligram
     Route: 058
     Dates: start: 20121027, end: 20121031
  34. HYDROMORPHONE [Concomitant]
     Indication: DRUG USE FOR UNKNOWN INDICATION
     Dosage: 0.25-1 MG
     Route: 041
     Dates: start: 20121025, end: 20121025
  35. HYDROMORPHONE [Concomitant]
     Dosage: 0.25-1mg
     Route: 041
     Dates: start: 20121025, end: 20121031
  36. LANSOPRAZOLE [Concomitant]
     Indication: DRUG USE FOR UNKNOWN INDICATION
     Dosage: 30 Milligram
     Route: 048
     Dates: start: 20121024, end: 20121031
  37. NEOMYCIN [Concomitant]
     Indication: DRUG USE FOR UNKNOWN INDICATION
     Route: 061
     Dates: start: 20121025, end: 20121031
  38. GELCLAIR [Concomitant]
     Indication: DRUG USE FOR UNKNOWN INDICATION
     Dosage: 45 milliliter
     Route: 065
     Dates: start: 20121025, end: 20121031
  39. SUCRALFATE [Concomitant]
     Indication: DRUG USE FOR UNKNOWN INDICATION
     Dosage: 4 Gram
     Route: 048
     Dates: start: 20121027, end: 20121031
  40. TRIMETHOPRIM-SULFAMETHOXAZOLE [Concomitant]
     Indication: DRUG USE FOR UNKNOWN INDICATION
     Route: 065
     Dates: start: 20121025, end: 20121031
  41. EUCERIN [Concomitant]
     Indication: DRUG USE FOR UNKNOWN INDICATION
     Route: 061
     Dates: start: 20121025, end: 20121031
  42. CEFEPIME [Concomitant]
     Indication: INFECTION
     Dosage: 6 Gram
     Route: 041
     Dates: start: 20121025, end: 20121029
  43. CEFEPIME [Concomitant]
     Route: 041
     Dates: start: 20121029, end: 20121030
  44. NEUPOGEN [Concomitant]
     Indication: DRUG USE FOR UNKNOWN INDICATION
     Dosage: 300 Microgram
     Route: 058
     Dates: start: 20121024, end: 20121026
  45. FLAGYL [Concomitant]
     Indication: DRUG USE FOR UNKNOWN INDICATION
     Dosage: 1000 Milligram
     Route: 041
     Dates: start: 20121025, end: 20121030
  46. PHYTONADIONE [Concomitant]
     Indication: DRUG USE FOR UNKNOWN INDICATION
     Dosage: 10 Milligram
     Route: 048
     Dates: start: 20121027, end: 20121027
  47. LEVAQUIN [Concomitant]
     Indication: INFECTION
     Dosage: 1000 Milligram
     Route: 041
     Dates: start: 20121024, end: 20121025

REACTIONS (6)
  - Atrial fibrillation [Recovered/Resolved]
  - Neutrophil count decreased [Recovered/Resolved]
  - Febrile neutropenia [Recovered/Resolved]
  - Mucosal inflammation [Recovered/Resolved]
  - Dehydration [Recovered/Resolved]
  - Epistaxis [Recovered/Resolved]
